FAERS Safety Report 9542160 (Version 1)
Quarter: 2013Q3

REPORT INFORMATION
  Report Type: Spontaneous
  Country: US (occurrence: None)
  Receive Date: 20130919
  Receipt Date: 20130919
  Transmission Date: 20140515
  Serious: No
  Sender: FDA-Public Use
  Company Number: None

PATIENT
  Age: 77 Year
  Sex: Male
  Weight: 79.38 kg

DRUGS (1)
  1. ANDROGEL 1.62% [Suspect]
     Indication: FATIGUE
     Dosage: 2 PUMPS ONCE DAILY APPLIED TO A SURFACE, USUALLY THE SKIN

REACTIONS (8)
  - Rash [None]
  - Erythema [None]
  - Skin irritation [None]
  - Pain [None]
  - Sleep disorder [None]
  - Urticaria [None]
  - Hot flush [None]
  - Feeling hot [None]
